FAERS Safety Report 6869730-6 (Version None)
Quarter: 2010Q3

REPORT INFORMATION
  Report Type: 
  Country: None (occurrence: None)
  Receive Date: 20100722
  Receipt Date: 20080912
  Transmission Date: 20110219
  Serious: No
  Sender: FDA-Public Use
  Company Number: US-PFIZER INC-2008066067

PATIENT
  Sex: Female
  Weight: 81.65 kg

DRUGS (6)
  1. CHANTIX [Suspect]
     Indication: SMOKING CESSATION THERAPY
     Dates: start: 20080618
  2. CHROMIUM CHLORIDE [Suspect]
     Indication: DECREASED APPETITE
  3. TYLENOL SINUS [Concomitant]
  4. VITAMIN B COMPLEX CAP [Concomitant]
  5. MOTRIN [Concomitant]
  6. GLUCOSAMINE HYDROCHLORIDE [Concomitant]

REACTIONS (6)
  - ADVERSE REACTION [None]
  - DRUG DOSE OMISSION [None]
  - EAR INFECTION [None]
  - HEADACHE [None]
  - MALAISE [None]
  - NAUSEA [None]
